FAERS Safety Report 23598922 (Version 2)
Quarter: 2024Q2

REPORT INFORMATION
  Report Type: Report from Study
  Country: US (occurrence: US)
  Receive Date: 20240306
  Receipt Date: 20240405
  Transmission Date: 20240716
  Serious: No
  Sender: FDA-Public Use
  Company Number: US-UCBSA-2024009445

PATIENT
  Sex: Male
  Weight: 52 kg

DRUGS (2)
  1. FINTEPLA [Suspect]
     Active Substance: FENFLURAMINE
     Indication: Lennox-Gastaut syndrome
     Dosage: 5.9 MILLILITER, 2X/DAY (BID)
     Dates: start: 20240306
  2. FINTEPLA [Suspect]
     Active Substance: FENFLURAMINE
     Dosage: 6.5 MILLILITER, 2X/DAY (BID)
     Dates: start: 2024

REACTIONS (2)
  - Off label use [Unknown]
  - Prescribed overdose [Unknown]

NARRATIVE: CASE EVENT DATE: 20240101
